FAERS Safety Report 23138108 (Version 1)
Quarter: 2023Q4

REPORT INFORMATION
  Report Type: Spontaneous
  Country: RU (occurrence: RU)
  Receive Date: 20231102
  Receipt Date: 20231102
  Transmission Date: 20240109
  Serious: Yes (Hospitalization)
  Sender: FDA-Public Use
  Company Number: RU-AMERICAN REGENT INC-2023002511

PATIENT
  Age: 68 Year
  Sex: Female

DRUGS (1)
  1. FERINJECT [Suspect]
     Active Substance: FERRIC CARBOXYMALTOSE
     Indication: Iron deficiency anaemia
     Dosage: 100 MILLIGRAM, DILUTED 2 ML OF FERINJECT IN 200 ML OF 0.9 PERCENT OF SODIUM CHLORIDE (NACL) SOLUTION
     Dates: start: 202304, end: 202304

REACTIONS (2)
  - Product preparation issue [Unknown]
  - Anaphylactoid reaction [Recovered/Resolved]

NARRATIVE: CASE EVENT DATE: 20230401
